FAERS Safety Report 12763695 (Version 1)
Quarter: 2016Q3

REPORT INFORMATION
  Report Type: Spontaneous
  Country: FR (occurrence: FR)
  Receive Date: 20160920
  Receipt Date: 20160920
  Transmission Date: 20161109
  Serious: Yes (Disabling, Other)
  Sender: FDA-Public Use
  Company Number: FR-ABBVIE-16P-056-1731691-00

PATIENT
  Sex: Male

DRUGS (1)
  1. DEPAKINE [Suspect]
     Active Substance: VALPROATE SODIUM
     Indication: MATERNAL EXPOSURE TIMING UNSPECIFIED
     Route: 064

REACTIONS (6)
  - Congenital anomaly [Not Recovered/Not Resolved]
  - Congenital cerebellar agenesis [Not Recovered/Not Resolved]
  - Endotracheal intubation [Unknown]
  - Brain malformation [Not Recovered/Not Resolved]
  - Foetal exposure during pregnancy [Unknown]
  - Congenital neurological disorder [Not Recovered/Not Resolved]

NARRATIVE: CASE EVENT DATE: 20160624
